FAERS Safety Report 16353041 (Version 1)
Quarter: 2019Q2

REPORT INFORMATION
  Report Type: Spontaneous
  Country: CZ (occurrence: CZ)
  Receive Date: 20190524
  Receipt Date: 20190524
  Transmission Date: 20190711
  Serious: Yes (Other)
  Sender: FDA-Public Use
  Company Number: CZ-PFIZER INC-2019218098

PATIENT
  Age: 71 Year
  Sex: Female

DRUGS (2)
  1. SORTIS [Suspect]
     Active Substance: ATORVASTATIN
     Dosage: UNK
  2. ROSUCARD [Suspect]
     Active Substance: ROSUVASTATIN CALCIUM
     Dosage: UNK

REACTIONS (11)
  - Joint swelling [Recovered/Resolved]
  - Alopecia [Unknown]
  - Tendon pain [Recovered/Resolved]
  - Hypoaesthesia [Unknown]
  - Arthralgia [Recovered/Resolved]
  - Muscle spasms [Unknown]
  - Depression [Unknown]
  - Pruritus generalised [Recovered/Resolved]
  - Type 2 diabetes mellitus [Not Recovered/Not Resolved]
  - Chromaturia [Unknown]
  - Pain in extremity [Recovered/Resolved]

NARRATIVE: CASE EVENT DATE: 2014
